FAERS Safety Report 10413344 (Version 2)
Quarter: 2014Q4

REPORT INFORMATION
  Report Type: Spontaneous
  Country: US (occurrence: US)
  Receive Date: 20140827
  Receipt Date: 20141110
  Transmission Date: 20150528
  Serious: Yes (Hospitalization, Other)
  Sender: FDA-Public Use
  Company Number: US-GLAXOSMITHKLINE-A0952711A

PATIENT
  Sex: Female

DRUGS (33)
  1. ADVAIR HFA [Suspect]
     Active Substance: FLUTICASONE PROPIONATE\SALMETEROL XINAFOATE
     Indication: EMPHYSEMA
  2. CENTRUM [Concomitant]
     Active Substance: VITAMINS
  3. SPIRIVA [Concomitant]
     Active Substance: TIOTROPIUM BROMIDE MONOHYDRATE
  4. MAGNESIUM GLUCONATE [Concomitant]
     Active Substance: MAGNESIUM GLUCONATE
  5. WARFARIN [Concomitant]
     Active Substance: WARFARIN
  6. CALCIUM WITH VITAMIN D [Concomitant]
     Active Substance: CALCIUM\VITAMIN D
  7. ADVAIR HFA [Suspect]
     Active Substance: FLUTICASONE PROPIONATE\SALMETEROL XINAFOATE
     Indication: ASTHMA
     Dosage: 1 PUFF(S), QD
     Route: 055
     Dates: start: 20100420
  8. MORPHINE [Suspect]
     Active Substance: MORPHINE
     Indication: PRODUCT USED FOR UNKNOWN INDICATION
     Route: 065
  9. ALPRAZOLAM. [Concomitant]
     Active Substance: ALPRAZOLAM
  10. DOCUSATE SODIUM. [Concomitant]
     Active Substance: DOCUSATE SODIUM
  11. METOPROLOL SUCCINATE. [Concomitant]
     Active Substance: METOPROLOL SUCCINATE
  12. VENLAFAXINE [Concomitant]
     Active Substance: VENLAFAXINE HYDROCHLORIDE
  13. HYDROCODONE [Concomitant]
     Active Substance: HYDROCODONE
  14. IRON [Concomitant]
     Active Substance: IRON
  15. ACCOLATE [Concomitant]
     Active Substance: ZAFIRLUKAST
  16. LASIX [Concomitant]
     Active Substance: FUROSEMIDE
  17. CYCLOBENZAPRINE [Concomitant]
     Active Substance: CYCLOBENZAPRINE
  18. LASIX [Concomitant]
     Active Substance: FUROSEMIDE
  19. CARISOPRODOL. [Concomitant]
     Active Substance: CARISOPRODOL
  20. AMITRIPTYLINE [Concomitant]
     Active Substance: AMITRIPTYLINE
  21. ZYRTEC [Concomitant]
     Active Substance: CETIRIZINE HYDROCHLORIDE
  22. PROAIR HFA [Concomitant]
     Active Substance: ALBUTEROL SULFATE
  23. VOLTAREN [Concomitant]
     Active Substance: DICLOFENAC SODIUM
  24. NEURONTIN [Concomitant]
     Active Substance: GABAPENTIN
  25. BACTROBAN [Concomitant]
     Active Substance: MUPIROCIN\MUPIROCIN CALCIUM
     Dates: start: 20140417
  26. TYLENOL [Concomitant]
     Active Substance: ACETAMINOPHEN
  27. PREDNISONE. [Concomitant]
     Active Substance: PREDNISONE
  28. ADVAIR HFA [Suspect]
     Active Substance: FLUTICASONE PROPIONATE\SALMETEROL XINAFOATE
     Indication: CHRONIC OBSTRUCTIVE PULMONARY DISEASE
  29. CELEBREX [Suspect]
     Active Substance: CELECOXIB
     Indication: PRODUCT USED FOR UNKNOWN INDICATION
     Route: 065
  30. FLONASE [Concomitant]
     Active Substance: FLUTICASONE PROPIONATE
     Dates: start: 20100422
  31. NEXIUM [Concomitant]
     Active Substance: ESOMEPRAZOLE MAGNESIUM
  32. COLCHICINE. [Concomitant]
     Active Substance: COLCHICINE
  33. THEO [Concomitant]

REACTIONS (12)
  - Amnesia [Unknown]
  - Paralysis [Unknown]
  - Surgery [Unknown]
  - Coma [Unknown]
  - Head injury [Unknown]
  - Fall [Unknown]
  - Drug hypersensitivity [Unknown]
  - Pharyngeal oedema [Unknown]
  - Hospitalisation [Unknown]
  - Pulmonary thrombosis [Unknown]
  - Vomiting projectile [Unknown]
  - Drug intolerance [Unknown]

NARRATIVE: CASE EVENT DATE: 2013
